FAERS Safety Report 13885248 (Version 1)
Quarter: 2017Q3

REPORT INFORMATION
  Report Type: Spontaneous
  Country: FR (occurrence: FR)
  Receive Date: 20170821
  Receipt Date: 20170821
  Transmission Date: 20171127
  Serious: Yes (Other)
  Sender: FDA-Public Use
  Company Number: FR-SA-2017SA148927

PATIENT
  Age: 61 Year
  Sex: Male

DRUGS (12)
  1. SINTROM [Concomitant]
     Active Substance: ACENOCOUMAROL
     Route: 065
  2. CEFAZOLINE [Concomitant]
     Active Substance: CEFAZOLIN SODIUM
     Route: 065
  3. URBANYL [Concomitant]
     Active Substance: CLOBAZAM
     Route: 065
  4. PERINDOPRIL [Concomitant]
     Active Substance: PERINDOPRIL
     Route: 065
  5. LYRICA [Concomitant]
     Active Substance: PREGABALIN
     Route: 065
  6. GENTAMICIN. [Concomitant]
     Active Substance: GENTAMICIN
     Route: 065
     Dates: start: 20170427
  7. RIFADINE [Suspect]
     Active Substance: RIFAMPIN
     Indication: ENDOCARDITIS STAPHYLOCOCCAL
     Route: 042
     Dates: start: 20170429, end: 20170502
  8. ZYLORIC [Concomitant]
     Active Substance: ALLOPURINOL
     Route: 065
  9. NEBIVOLOL. [Concomitant]
     Active Substance: NEBIVOLOL
     Route: 065
  10. RIFADINE [Suspect]
     Active Substance: RIFAMPIN
     Indication: ENDOCARDITIS STAPHYLOCOCCAL
     Route: 042
     Dates: start: 20170505, end: 20170509
  11. DI-HYDAN [Concomitant]
     Active Substance: PHENYTOIN
     Route: 065
  12. ORBENINE [Concomitant]
     Active Substance: CLOXACILLIN SODIUM
     Route: 065
     Dates: start: 20170427

REACTIONS (5)
  - Thrombocytopenia [Recovering/Resolving]
  - Haemolytic anaemia [Recovering/Resolving]
  - Cholestasis [Recovering/Resolving]
  - Condition aggravated [Recovering/Resolving]
  - Hyperbilirubinaemia [Recovering/Resolving]

NARRATIVE: CASE EVENT DATE: 20170505
